APPROVED DRUG PRODUCT: SIRTURO
Active Ingredient: BEDAQUILINE FUMARATE
Strength: EQ 20MG BASE
Dosage Form/Route: TABLET;ORAL
Application: N204384 | Product #002
Applicant: JANSSEN THERAPEUTICS DIV JANSSEN PRODUCTS LP
Approved: May 27, 2020 | RLD: Yes | RS: No | Type: RX

PATENTS:
Patent 8546428 | Expires: Mar 19, 2029
Patent 7498343 | Expires: Dec 1, 2026

EXCLUSIVITY:
Code: M-306 | Date: Jun 21, 2027
Code: ODE* | Date: Aug 9, 2026
Code: ODE-307 | Date: May 27, 2027